FAERS Safety Report 11151989 (Version 1)
Quarter: 2015Q2

REPORT INFORMATION
  Report Type: Spontaneous
  Country: ES (occurrence: ES)
  Receive Date: 20150601
  Receipt Date: 20150601
  Transmission Date: 20150821
  Serious: Yes (Other)
  Sender: FDA-Public Use
  Company Number: ES-APOTEX-2015AP008123

PATIENT

DRUGS (2)
  1. BOSENTAN [Interacting]
     Active Substance: BOSENTAN\BOSENTAN MONOHYDRATE
     Indication: PULMONARY HYPERTENSION
     Route: 065
  2. SILDENAFIL. [Suspect]
     Active Substance: SILDENAFIL
     Indication: PULMONARY HYPERTENSION
     Route: 065

REACTIONS (2)
  - Drug interaction [Recovered/Resolved]
  - Hepatotoxicity [Recovered/Resolved]
